FAERS Safety Report 18024428 (Version 5)
Quarter: 2023Q4

REPORT INFORMATION
  Report Type: Spontaneous
  Country: US (occurrence: US)
  Receive Date: 20200714
  Receipt Date: 20231106
  Transmission Date: 20240110
  Serious: Yes (Other)
  Sender: FDA-Public Use
  Company Number: US-GILEAD-2020-0480914

PATIENT
  Sex: Female
  Weight: 87.982 kg

DRUGS (30)
  1. VIREAD [Suspect]
     Active Substance: TENOFOVIR DISOPROXIL FUMARATE
     Indication: HIV infection
     Dosage: UNK
     Route: 048
     Dates: start: 201510, end: 2019
  2. ATRIPLA [Suspect]
     Active Substance: EFAVIRENZ\EMTRICITABINE\TENOFOVIR DISOPROXIL FUMARATE
     Indication: HIV infection
     Dosage: UNK
     Route: 048
     Dates: start: 201602
  3. ATRIPLA [Suspect]
     Active Substance: EFAVIRENZ\EMTRICITABINE\TENOFOVIR DISOPROXIL FUMARATE
     Dosage: UNK
     Route: 048
     Dates: start: 2007
  4. ATRIPLA [Suspect]
     Active Substance: EFAVIRENZ\EMTRICITABINE\TENOFOVIR DISOPROXIL FUMARATE
     Dosage: UNK
     Route: 048
     Dates: start: 201001, end: 202012
  5. AMITRIPTYLINE [Concomitant]
     Active Substance: AMITRIPTYLINE
  6. ATENOLOL [Concomitant]
     Active Substance: ATENOLOL
  7. BASAGLAR KWIKPEN [Concomitant]
     Active Substance: INSULIN GLARGINE
  8. CHANTIX [Concomitant]
     Active Substance: VARENICLINE TARTRATE
  9. CYCLOBENZAPRINE [Concomitant]
     Active Substance: CYCLOBENZAPRINE
  10. DOVATO [Concomitant]
     Active Substance: DOLUTEGRAVIR SODIUM\LAMIVUDINE
  11. ENALAPRIL [Concomitant]
     Active Substance: ENALAPRIL
  12. FOLIC ACID [Concomitant]
     Active Substance: FOLIC ACID
  13. GABAPENTIN [Concomitant]
     Active Substance: GABAPENTIN
  14. HYDROCHLOROTHIAZIDE [Concomitant]
     Active Substance: HYDROCHLOROTHIAZIDE
  15. LANTUS [Concomitant]
     Active Substance: INSULIN GLARGINE
  16. ASPIRIN [Concomitant]
     Active Substance: ASPIRIN
  17. MELOXICAM [Concomitant]
     Active Substance: MELOXICAM
  18. METFORMIN [Concomitant]
     Active Substance: METFORMIN HYDROCHLORIDE
  19. METOPROLOL [Concomitant]
     Active Substance: METOPROLOL
  20. MONTELUKAST [Concomitant]
     Active Substance: MONTELUKAST SODIUM
  21. RANITIDINE [Concomitant]
     Active Substance: RANITIDINE
  22. SYMBICORT [Concomitant]
     Active Substance: BUDESONIDE\FORMOTEROL FUMARATE DIHYDRATE
  23. ZETIA [Concomitant]
     Active Substance: EZETIMIBE
  24. BACLOFEN [Concomitant]
     Active Substance: BACLOFEN
  25. FORTEO [Concomitant]
     Active Substance: TERIPARATIDE
  26. IBUPROFEN [Concomitant]
     Active Substance: IBUPROFEN
  27. LORAZEPAM [Concomitant]
     Active Substance: LORAZEPAM
  28. TRAMADOL [Concomitant]
     Active Substance: TRAMADOL\TRAMADOL HYDROCHLORIDE
  29. VITAMIN D NOS [Concomitant]
     Active Substance: VITAMIN D NOS
  30. BUSPIRONE [Concomitant]
     Active Substance: BUSPIRONE HYDROCHLORIDE

REACTIONS (15)
  - Renal injury [Unknown]
  - Multiple fractures [Unknown]
  - Osteonecrosis [Unknown]
  - Osteoporosis [Not Recovered/Not Resolved]
  - Bone loss [Unknown]
  - Bone density decreased [Not Recovered/Not Resolved]
  - Anhedonia [Not Recovered/Not Resolved]
  - Emotional distress [Not Recovered/Not Resolved]
  - Gait disturbance [Not Recovered/Not Resolved]
  - Dysstasia [Not Recovered/Not Resolved]
  - Osteopenia [Not Recovered/Not Resolved]
  - Arthralgia [Not Recovered/Not Resolved]
  - Anxiety [Not Recovered/Not Resolved]
  - Pain [Not Recovered/Not Resolved]
  - Depression [Unknown]

NARRATIVE: CASE EVENT DATE: 20190101
